FAERS Safety Report 8867572 (Version 1)
Quarter: 2012Q4

REPORT INFORMATION
  Report Type: 
  Country: US (occurrence: US)
  Receive Date: 20121025
  Receipt Date: 20121025
  Transmission Date: 20130627
  Serious: No
  Sender: FDA-Public Use
  Company Number: US-AMGEN-USASP2012017454

PATIENT
  Age: 62 Year
  Sex: Female

DRUGS (9)
  1. ENBREL [Suspect]
     Indication: PRODUCT USED FOR UNKNOWN INDICATION
     Dosage: 50 mg, qwk
     Route: 058
  2. LIALDA [Concomitant]
     Dosage: 1.2 g, UNK
  3. MULTIVITAMIN                       /00097801/ [Concomitant]
     Dosage: UNK
  4. GARLIC                             /01570501/ [Concomitant]
     Dosage: 350 mg, UNK
  5. VITAMIN D /00107901/ [Concomitant]
     Dosage: 400 IU, UNK
  6. LORTAB                             /00607101/ [Concomitant]
     Dosage: UNK
  7. CELEBREX [Concomitant]
     Dosage: 200 mg, UNK
  8. BUPROPION [Concomitant]
     Dosage: 75 mg, UNK
  9. VESICARE [Concomitant]
     Dosage: 5 mg, UNK

REACTIONS (1)
  - Surgery [Unknown]
